FAERS Safety Report 6340428-6 (Version None)
Quarter: 2009Q3

REPORT INFORMATION
  Report Type: 
  Country: None (occurrence: None)
  Receive Date: 20090904
  Receipt Date: 20090827
  Transmission Date: 20100115
  Serious: Yes (Hospitalization)
  Sender: FDA-Public Use
  Company Number: US-BIOGENIDEC-2009BI027853

PATIENT
  Age: 1 Day
  Sex: Male

DRUGS (3)
  1. AVONEX [Suspect]
     Indication: DRUG EXPOSURE DURING PREGNANCY
     Route: 030
     Dates: start: 19990201, end: 20021211
  2. AVONEX [Suspect]
     Route: 030
     Dates: start: 20050201, end: 20061001
  3. AVONEX [Suspect]
     Route: 030
     Dates: start: 20081231

REACTIONS (1)
  - JAUNDICE [None]
